FAERS Safety Report 19170924 (Version 1)
Quarter: 2021Q2

REPORT INFORMATION
  Report Type: Report from Study
  Country: None (occurrence: CO)
  Receive Date: 20210423
  Receipt Date: 20210423
  Transmission Date: 20210717
  Serious: Yes (Other)
  Sender: FDA-Public Use
  Company Number: CO-ABBVIE-21K-036-3871014-00

PATIENT
  Sex: Female
  Weight: 69 kg

DRUGS (2)
  1. HUMIRA [Suspect]
     Active Substance: ADALIMUMAB
     Indication: COLITIS ULCERATIVE
     Route: 058
  2. HUMIRA [Suspect]
     Active Substance: ADALIMUMAB
     Indication: COLITIS ULCERATIVE
     Route: 058
     Dates: start: 20160826

REACTIONS (8)
  - Hyperthyroidism [Recovering/Resolving]
  - Memory impairment [Recovering/Resolving]
  - Thyroid disorder [Recovering/Resolving]
  - Arthralgia [Recovering/Resolving]
  - Skin injury [Recovering/Resolving]
  - Skin burning sensation [Recovering/Resolving]
  - Pain in extremity [Recovering/Resolving]
  - Blood iron decreased [Recovering/Resolving]

NARRATIVE: CASE EVENT DATE: 2016
